FAERS Safety Report 24695965 (Version 3)
Quarter: 2025Q1

REPORT INFORMATION
  Report Type: Spontaneous
  Country: ES (occurrence: ES)
  Receive Date: 20241204
  Receipt Date: 20250114
  Transmission Date: 20250408
  Serious: Yes (Hospitalization, Other)
  Sender: BAUSCH AND LOMB
  Company Number: ES-MLMSERVICE-20241122-PI265392-00059-1

PATIENT
  Age: 31 Year
  Sex: Male

DRUGS (2)
  1. AZATHIOPRINE [Suspect]
     Active Substance: AZATHIOPRINE
     Indication: Proctitis ulcerative
     Route: 065
  2. ADALIMUMAB [Suspect]
     Active Substance: ADALIMUMAB
     Indication: Proctitis ulcerative
     Route: 065

REACTIONS (1)
  - Epstein Barr virus positive mucocutaneous ulcer [Recovering/Resolving]
